FAERS Safety Report 14375267 (Version 1)
Quarter: 2018Q1

REPORT INFORMATION
  Report Type: Spontaneous
  Country: IN (occurrence: IN)
  Receive Date: 20180111
  Receipt Date: 20180111
  Transmission Date: 20180509
  Serious: Yes (Death, Life-Threatening, Hospitalization)
  Sender: FDA-Public Use
  Company Number: PHHY2018IN002362

PATIENT
  Age: 8 Year
  Sex: Female

DRUGS (5)
  1. PHENOBARBITONE [Concomitant]
     Active Substance: PHENOBARBITAL
     Indication: IDIOPATHIC GENERALISED EPILEPSY
     Dosage: 3 MG/KG, QD
     Route: 065
  2. CLOBAZAM [Concomitant]
     Active Substance: CLOBAZAM
     Indication: IDIOPATHIC GENERALISED EPILEPSY
     Dosage: 0.2 MG/KG, QD
     Route: 065
  3. SODIUM VALPROATE [Concomitant]
     Active Substance: VALPROATE SODIUM
     Indication: IDIOPATHIC GENERALISED EPILEPSY
     Dosage: 30 MG/KG, QD
     Route: 065
  4. OXCARBAZEPINE. [Suspect]
     Active Substance: OXCARBAZEPINE
     Indication: IDIOPATHIC GENERALISED EPILEPSY
     Dosage: 21 MG/KG, QD
     Route: 065
  5. LEVETIRACETAM. [Concomitant]
     Active Substance: LEVETIRACETAM
     Indication: IDIOPATHIC GENERALISED EPILEPSY
     Dosage: 47 MG/KG, QD
     Route: 065

REACTIONS (8)
  - Nosocomial infection [Fatal]
  - Hepatomegaly [Unknown]
  - Rash generalised [Unknown]
  - Pyrexia [Unknown]
  - Lymphadenopathy [Unknown]
  - Drug reaction with eosinophilia and systemic symptoms [Unknown]
  - Heart rate increased [Unknown]
  - Blood pressure decreased [Unknown]
